FAERS Safety Report 8965763 (Version 4)
Quarter: 2013Q2

REPORT INFORMATION
  Report Type: Report from Study
  Country: JP (occurrence: JP)
  Receive Date: 20121214
  Receipt Date: 20130517
  Transmission Date: 20140414
  Serious: Yes (Hospitalization)
  Sender: FDA-Public Use
  Company Number: JP-B.I. PHARMACEUTICALS,INC./RIDGEFIELD-2012-BI-02729NB

PATIENT
  Age: 71 Year
  Sex: Male
  Weight: 55.6 kg

DRUGS (6)
  1. PRADAXA [Suspect]
     Indication: ATRIAL FIBRILLATION
     Dosage: 220 MG
     Route: 048
     Dates: start: 20120719, end: 20120812
  2. PRADAXA [Suspect]
     Indication: CEREBROVASCULAR ACCIDENT PROPHYLAXIS
  3. PRADAXA [Suspect]
     Indication: THROMBOSIS PROPHYLAXIS
  4. KERLONG [Concomitant]
     Indication: ATRIAL FIBRILLATION
     Dosage: 5 MG
     Route: 048
     Dates: end: 20120719
  5. VASOLAN [Concomitant]
     Indication: ATRIAL FIBRILLATION
     Dosage: 160 MG
     Route: 048
     Dates: end: 20120719
  6. MAINTATE [Concomitant]
     Indication: ATRIAL FIBRILLATION
     Dosage: 2.5 MG
     Route: 048
     Dates: start: 20120719, end: 20120812

REACTIONS (2)
  - Acute myocardial infarction [Recovered/Resolved]
  - Hyperuricaemia [Unknown]
